FAERS Safety Report 23567635 (Version 1)
Quarter: 2024Q1

REPORT INFORMATION
  Report Type: Spontaneous
  Country: US (occurrence: US)
  Receive Date: 20240226
  Receipt Date: 20240226
  Transmission Date: 20240410
  Serious: No
  Sender: FDA-Public Use
  Company Number: US-ABBVIE-5654858

PATIENT
  Age: 13 Year
  Sex: Female

DRUGS (1)
  1. LO LOESTRIN FE [Suspect]
     Active Substance: ETHINYL ESTRADIOL\NORETHINDRONE ACETATE
     Indication: Product used for unknown indication
     Dosage: STRENGTH- NORETHINDRONE ACETATE 1MG AND ETHINYL ESTRADIOL 0.1MG AND ETHINYL ESTRADIOL 0.1MG TABLET
     Route: 065

REACTIONS (1)
  - Urticaria [Unknown]
